FAERS Safety Report 23253155 (Version 2)
Quarter: 2023Q4

REPORT INFORMATION
  Report Type: Report from Study
  Country: CO (occurrence: CO)
  Receive Date: 20231202
  Receipt Date: 20231214
  Transmission Date: 20240110
  Serious: Yes (Hospitalization)
  Sender: FDA-Public Use
  Company Number: CO-ABBVIE-5521838

PATIENT
  Sex: Male
  Weight: 87 kg

DRUGS (2)
  1. ZEMPLAR [Suspect]
     Active Substance: PARICALCITOL
     Indication: Hyperparathyroidism secondary
     Dosage: 2 MICROGRAM
     Route: 048
     Dates: start: 20160630
  2. ZEMPLAR [Suspect]
     Active Substance: PARICALCITOL
     Indication: Hyperparathyroidism secondary
     Dosage: 2 MICROGRAM
     Route: 048
     Dates: start: 202311

REACTIONS (3)
  - Congenital cystic kidney disease [Recovering/Resolving]
  - Blood parathyroid hormone abnormal [Not Recovered/Not Resolved]
  - Haematuria [Unknown]

NARRATIVE: CASE EVENT DATE: 20230101
